FAERS Safety Report 7407840-5 (Version None)
Quarter: 2011Q2

REPORT INFORMATION
  Report Type: 
  Country: None (occurrence: None)
  Receive Date: 20110412
  Receipt Date: 20110405
  Transmission Date: 20111010
  Serious: Yes (Other)
  Sender: FDA-Public Use
  Company Number: FR-ASTELLAS-2011EU001183

PATIENT
  Sex: Male
  Weight: 84 kg

DRUGS (2)
  1. PROGRAF [Suspect]
     Indication: LUNG TRANSPLANT
     Dosage: 5 MG, UNKNOWN/D
     Route: 048
     Dates: start: 20110209
  2. PROGRAF [Suspect]
     Dosage: 1 DF, OTHER
     Route: 048
     Dates: start: 20110209, end: 20110209

REACTIONS (2)
  - DRUG LEVEL ABOVE THERAPEUTIC [None]
  - DRUG ADMINISTRATION ERROR [None]
